FAERS Safety Report 10530275 (Version 2)
Quarter: 2014Q4

REPORT INFORMATION
  Report Type: Spontaneous
  Country: US (occurrence: US)
  Receive Date: 20141021
  Receipt Date: 20141103
  Transmission Date: 20150528
  Serious: No
  Sender: FDA-Public Use
  Company Number: US-PFIZER INC-2014287738

PATIENT
  Age: 78 Year
  Sex: Male

DRUGS (2)
  1. LYRICA [Suspect]
     Active Substance: PREGABALIN
     Dosage: 75 MG, UNK
  2. LYRICA [Suspect]
     Active Substance: PREGABALIN
     Indication: BACK PAIN
     Dosage: 50 MG, 2X/DAY [1 IN MORNING AND 1 IN EVENING]
     Dates: start: 201406

REACTIONS (5)
  - Hypersensitivity [Unknown]
  - Rash [Unknown]
  - Abdominal pain upper [Unknown]
  - Malaise [Unknown]
  - Herpes zoster [Unknown]

NARRATIVE: CASE EVENT DATE: 20141017
